FAERS Safety Report 7704855-4 (Version None)
Quarter: 2011Q3

REPORT INFORMATION
  Report Type: 
  Country: None (occurrence: None)
  Receive Date: 20110823
  Receipt Date: 20110815
  Transmission Date: 20111222
  Serious: Yes (Hospitalization)
  Sender: FDA-Public Use
  Company Number: CN-BAXTER-2011BH025329

PATIENT
  Age: 63 Year
  Sex: Female

DRUGS (11)
  1. ONDANSETRON [Suspect]
     Indication: ANTIEMETIC SUPPORTIVE CARE
     Route: 041
     Dates: start: 20110728, end: 20110728
  2. LANSOPRAZOLE [Suspect]
     Indication: ANTIINFLAMMATORY THERAPY
     Route: 041
     Dates: start: 20110730, end: 20110731
  3. LANSOPRAZOLE [Suspect]
     Route: 041
     Dates: start: 20110729, end: 20110729
  4. LANSOPRAZOLE [Suspect]
     Route: 041
     Dates: start: 20110729, end: 20110729
  5. SODIUM CHLORIDE 0.9% IN PLASTIC CONTAINER [Suspect]
     Indication: MEDICATION DILUTION
     Route: 041
     Dates: start: 20110719
  6. SODIUM CHLORIDE 0.9% IN PLASTIC CONTAINER [Suspect]
     Route: 041
     Dates: start: 20110729, end: 20110729
  7. LANSOPRAZOLE [Suspect]
     Route: 041
     Dates: start: 20110719
  8. ONDANSETRON [Suspect]
     Route: 041
     Dates: start: 20110729, end: 20110729
  9. SODIUM CHLORIDE 0.9% IN PLASTIC CONTAINER [Suspect]
     Route: 041
     Dates: start: 20110730, end: 20110731
  10. LANSOPRAZOLE [Suspect]
     Indication: ULCER
     Route: 041
     Dates: start: 20110730, end: 20110731
  11. LANSOPRAZOLE [Suspect]
     Route: 041
     Dates: start: 20110719

REACTIONS (5)
  - NAUSEA [None]
  - CONDITION AGGRAVATED [None]
  - PRODUCT DEPOSIT [None]
  - PYREXIA [None]
  - MALAISE [None]
